FAERS Safety Report 14545319 (Version 1)
Quarter: 2018Q1

REPORT INFORMATION
  Report Type: Report from Study
  Country: BR (occurrence: BR)
  Receive Date: 20180218
  Receipt Date: 20180218
  Transmission Date: 20180509
  Serious: Yes (Disabling, Other)
  Sender: FDA-Public Use
  Company Number: PHHY2017BR003670

PATIENT
  Age: 35 Year
  Sex: Male
  Weight: 55 kg

DRUGS (13)
  1. LDK378 [Suspect]
     Active Substance: CERITINIB
     Dosage: 3 DF, QD
     Route: 048
     Dates: start: 201610, end: 201610
  2. LDK378 [Suspect]
     Active Substance: CERITINIB
     Dosage: 3 DF, QD
     Route: 048
     Dates: start: 201608, end: 201608
  3. LDK378 [Suspect]
     Active Substance: CERITINIB
     Dosage: 3 DF, QD
     Route: 048
     Dates: start: 201611, end: 201611
  4. LDK378 [Suspect]
     Active Substance: CERITINIB
     Dosage: 300 MG, QD
     Route: 048
     Dates: end: 20171010
  5. LDK378 [Suspect]
     Active Substance: CERITINIB
     Dosage: DOSE INCREASED TO 2 DF EVEN DAYS AND 3 DF ODD DAYS
     Route: 048
     Dates: start: 201609, end: 201609
  6. LDK378 [Suspect]
     Active Substance: CERITINIB
     Dosage: 2 DF EVEN DAYS AND 3 DF DAYS ODDUNK
     Route: 048
     Dates: start: 201611, end: 201612
  7. LDK378 [Suspect]
     Active Substance: CERITINIB
     Indication: NON-SMALL CELL LUNG CANCER METASTATIC
     Dosage: 5 DF (600 MG), QD
     Route: 048
     Dates: start: 20160613
  8. LDK378 [Suspect]
     Active Substance: CERITINIB
     Dosage: TOLERATED ONLY 02 DF PER DAY
     Route: 048
     Dates: start: 201608, end: 201609
  9. LDK378 [Suspect]
     Active Substance: CERITINIB
     Dosage: 2 DF, UNK
     Route: 048
     Dates: start: 201612
  10. DEXAMETHASONE. [Concomitant]
     Active Substance: DEXAMETHASONE
     Indication: METASTASES TO CENTRAL NERVOUS SYSTEM
     Dosage: 8 MG, QD
     Route: 065
     Dates: start: 20171002
  11. LDK378 [Suspect]
     Active Substance: CERITINIB
     Dosage: 4 DF, QD
     Route: 048
     Dates: start: 201606, end: 201608
  12. LDK378 [Suspect]
     Active Substance: CERITINIB
     Dosage: 3 DF, QD
     Route: 048
     Dates: start: 201606, end: 201606
  13. LDK378 [Suspect]
     Active Substance: CERITINIB
     Dosage: 2/3 DF EVERY OTHER DAY
     Route: 048
     Dates: start: 201609, end: 201609

REACTIONS (32)
  - Blood creatinine increased [Recovered/Resolved]
  - Influenza [Recovered/Resolved]
  - Abdominal pain upper [Recovering/Resolving]
  - Blood creatinine increased [Recovering/Resolving]
  - Opportunistic infection [Unknown]
  - Diarrhoea [Recovered/Resolved]
  - Nausea [Recovered/Resolved]
  - Chest pain [Recovered/Resolved]
  - Nasopharyngitis [Unknown]
  - Pyrexia [Recovered/Resolved]
  - Diarrhoea [Unknown]
  - Atypical mycobacterial pneumonia [Not Recovered/Not Resolved]
  - Transaminases increased [Recovered/Resolved]
  - Diarrhoea [Recovered/Resolved]
  - Blood creatinine increased [Recovered/Resolved]
  - Diarrhoea [Recovered/Resolved]
  - Acne [Recovered/Resolved]
  - Cough [Unknown]
  - Respiratory tract infection [Recovered/Resolved]
  - Malignant neoplasm progression [Unknown]
  - Dyspnoea [Unknown]
  - Weight decreased [Unknown]
  - Tuberculosis [Unknown]
  - Non-small cell lung cancer [Unknown]
  - Mycobacterium test positive [Recovering/Resolving]
  - Nausea [Recovered/Resolved]
  - Chest discomfort [Recovered/Resolved]
  - Metastases to central nervous system [Unknown]
  - Vomiting [Recovered/Resolved]
  - Vomiting [Recovered/Resolved]
  - Drug intolerance [Unknown]
  - Performance status decreased [Not Recovered/Not Resolved]

NARRATIVE: CASE EVENT DATE: 201606
